FAERS Safety Report 4828747-3 (Version None)
Quarter: 2005Q4

REPORT INFORMATION
  Report Type: 
  Country: None (occurrence: None)
  Receive Date: 20051115
  Receipt Date: 20050830
  Transmission Date: 20060501
  Serious: Yes (Hospitalization)
  Sender: FDA-Public Use
  Company Number: US-MERCK-0509USA00134

PATIENT
  Age: 76 Year
  Sex: Male
  Weight: 75 kg

DRUGS (6)
  1. VIOXX [Suspect]
     Indication: ARTHRITIS
     Route: 048
     Dates: start: 20000401, end: 20030501
  2. FUROSEMIDE [Concomitant]
     Route: 065
  3. CARTIA (DILTIAZEM HYDROCHLORIDE) [Concomitant]
     Route: 065
  4. COUMADIN [Concomitant]
     Indication: ATRIAL FIBRILLATION
     Route: 065
  5. NITROGLYCERIN [Concomitant]
     Route: 065
  6. ZOCOR [Concomitant]
     Route: 065

REACTIONS (14)
  - CARDIAC FAILURE CONGESTIVE [None]
  - CARDIOMEGALY [None]
  - CEREBRAL HAEMORRHAGE [None]
  - CEREBRAL INFARCTION [None]
  - CEREBROVASCULAR ACCIDENT [None]
  - DEPRESSION [None]
  - DILATATION ATRIAL [None]
  - DILATATION VENTRICULAR [None]
  - GOUTY ARTHRITIS [None]
  - MITRAL VALVE INCOMPETENCE [None]
  - PROSTATE EXAMINATION ABNORMAL [None]
  - RENAL FAILURE [None]
  - TRICUSPID VALVE INCOMPETENCE [None]
  - VENTRICULAR HYPOKINESIA [None]
